FAERS Safety Report 25655384 (Version 1)
Quarter: 2025Q3

REPORT INFORMATION
  Report Type: Spontaneous
  Country: BR (occurrence: BR)
  Receive Date: 20250807
  Receipt Date: 20250807
  Transmission Date: 20251021
  Serious: Yes (Other)
  Sender: ALEXION PHARMACEUTICALS
  Company Number: BR-AstraZeneca-CH-00709694A

PATIENT
  Age: 76 Year
  Sex: Male

DRUGS (2)
  1. CALQUENCE [Suspect]
     Active Substance: ACALABRUTINIB
  2. IMBRUVICA [Concomitant]
     Active Substance: IBRUTINIB
     Route: 065

REACTIONS (1)
  - Pancreatic neoplasm [Unknown]
